FAERS Safety Report 10701273 (Version 1)
Quarter: 2015Q1

REPORT INFORMATION
  Report Type: Spontaneous
  Country: US (occurrence: US)
  Receive Date: 20150109
  Receipt Date: 20150109
  Transmission Date: 20150721
  Serious: Yes (Death)
  Sender: FDA-Public Use
  Company Number: US-BAYER-2015-003068

PATIENT
  Age: 52 Year
  Sex: Male

DRUGS (9)
  1. ACETYLSALICYLIC ACID (} 100 MG) [Suspect]
     Active Substance: ASPIRIN
     Route: 048
  2. DILTIAZEM [Suspect]
     Active Substance: DILTIAZEM
     Dosage: UNK
     Route: 048
  3. GABAPENTIN. [Suspect]
     Active Substance: GABAPENTIN
     Route: 048
  4. HYDROXYZINE [Suspect]
     Active Substance: HYDROXYZINE\HYDROXYZINE HYDROCHLORIDE
     Route: 048
  5. MIRTAZAPINE. [Suspect]
     Active Substance: MIRTAZAPINE
     Route: 048
  6. ETHANOL [Suspect]
     Active Substance: ALCOHOL
     Route: 048
  7. CITALOPRAM [Suspect]
     Active Substance: CITALOPRAM HYDROBROMIDE
     Route: 048
  8. OMEPRAZOLE. [Suspect]
     Active Substance: OMEPRAZOLE
     Route: 048
  9. METOPROLOL [Suspect]
     Active Substance: METOPROLOL
     Route: 048

REACTIONS (1)
  - Toxicity to various agents [Fatal]
